FAERS Safety Report 18983172 (Version 1)
Quarter: 2021Q1

REPORT INFORMATION
  Report Type: Spontaneous
  Country: DE (occurrence: DE)
  Receive Date: 20210308
  Receipt Date: 20210308
  Transmission Date: 20210420
  Serious: Yes (Other)
  Sender: FDA-Public Use
  Company Number: NVSC2021DE046659

PATIENT
  Age: 55 Year
  Sex: Male

DRUGS (8)
  1. ROPINIROL ? 1 A PHARMA [Suspect]
     Active Substance: ROPINIROLE HYDROCHLORIDE
     Dosage: (0?0?1 STRENGTH: 4 MG SUSTAINED RELEASE TABLETES)
     Route: 065
  2. VITAMIN D [Concomitant]
     Active Substance: VITAMIN D NOS
     Indication: PRODUCT USED FOR UNKNOWN INDICATION
     Dosage: STRENGTH: 20000
     Route: 065
  3. ONGENTYS [Concomitant]
     Active Substance: OPICAPONE
     Indication: PRODUCT USED FOR UNKNOWN INDICATION
     Dosage: UNK
     Route: 065
  4. ROPINIROL ? 1 A PHARMA [Suspect]
     Active Substance: ROPINIROLE HYDROCHLORIDE
     Indication: PARKINSON^S DISEASE
     Dosage: 12 MG, QD (1?0?0 SUSTAINED RELEASE TABLETES)
     Route: 065
  5. IODIDE [Concomitant]
     Active Substance: IODINE
     Indication: PRODUCT USED FOR UNKNOWN INDICATION
     Dosage: UNK
     Route: 065
  6. ROPINIROL ? 1 A PHARMA [Suspect]
     Active Substance: ROPINIROLE HYDROCHLORIDE
     Dosage: (1?0?1 STRENGTH: 4 MG SUSTAINED RELEASE TABLETES))
     Route: 065
  7. ISICOM [Concomitant]
     Active Substance: CARBIDOPA\LEVODOPA
     Indication: PRODUCT USED FOR UNKNOWN INDICATION
     Dosage: UNK
     Route: 065
  8. ROPINIROL ? 1 A PHARMA [Suspect]
     Active Substance: ROPINIROLE HYDROCHLORIDE
     Dosage: (1?0?0 STRENGTH: 8 MG SUSTAINED RELEASE TABLETES)
     Route: 065

REACTIONS (3)
  - Product prescribing error [Unknown]
  - Arrhythmia [Unknown]
  - Inappropriate schedule of product administration [Unknown]
